FAERS Safety Report 7412632-7 (Version None)
Quarter: 2011Q2

REPORT INFORMATION
  Report Type: 
  Country: None (occurrence: None)
  Receive Date: 20110413
  Receipt Date: 20110413
  Transmission Date: 20111010
  Serious: Yes (Death, Hospitalization)
  Sender: FDA-Public Use
  Company Number: None

PATIENT
  Age: 70 Year
  Sex: Male
  Weight: 83.9154 kg

DRUGS (1)
  1. TPN [Suspect]
     Indication: PARENTERAL NUTRITION
     Dosage: IV BAG

REACTIONS (3)
  - SEPTIC SHOCK [None]
  - BACTERIAL INFECTION [None]
  - PRODUCT CONTAMINATION MICROBIAL [None]
